FAERS Safety Report 21533996 (Version 2)
Quarter: 2022Q4

REPORT INFORMATION
  Report Type: Spontaneous
  Country: US (occurrence: US)
  Receive Date: 20221101
  Receipt Date: 20221109
  Transmission Date: 20230112
  Serious: No
  Sender: FDA-Public Use
  Company Number: US-TEVA-2022-US-2820171

PATIENT
  Sex: Female

DRUGS (4)
  1. ALBUTEROL SULFATE [Suspect]
     Active Substance: ALBUTEROL SULFATE
     Indication: Asthma
     Dosage: 90 MCG/DOSE
     Route: 055
  2. ALBUTEROL SULFATE [Suspect]
     Active Substance: ALBUTEROL SULFATE
  3. PROAIR HFA [Suspect]
     Active Substance: ALBUTEROL SULFATE
     Indication: Product used for unknown indication
     Dosage: 90 MCG/DOSE
     Route: 055
  4. PROAIR HFA [Suspect]
     Active Substance: ALBUTEROL SULFATE

REACTIONS (10)
  - Feeling abnormal [Unknown]
  - Chest discomfort [Unknown]
  - Respiratory tract irritation [Unknown]
  - Chest pain [Unknown]
  - Burning sensation [Unknown]
  - Device malfunction [Unknown]
  - Product taste abnormal [Unknown]
  - Product odour abnormal [Unknown]
  - Respiratory tract inflammation [Unknown]
  - Product availability issue [Unknown]
